FAERS Safety Report 14577514 (Version 1)
Quarter: 2018Q1

REPORT INFORMATION
  Report Type: Spontaneous
  Country: US (occurrence: US)
  Receive Date: 20180226
  Receipt Date: 20180226
  Transmission Date: 20180509
  Serious: Yes (Other)
  Sender: FDA-Public Use
  Company Number: None

PATIENT
  Age: 57 Year
  Sex: Female
  Weight: 123.1 kg

DRUGS (1)
  1. VENOFER [Suspect]
     Active Substance: IRON SUCROSE
     Indication: ANAEMIA
     Dosage: ?          OTHER FREQUENCY:WEEKLY;?
     Route: 041
     Dates: start: 20180213, end: 20180222

REACTIONS (3)
  - Infusion related reaction [None]
  - Erythema [None]
  - Pruritus [None]

NARRATIVE: CASE EVENT DATE: 20180222
